FAERS Safety Report 9291993 (Version 1)
Quarter: 2013Q2

REPORT INFORMATION
  Report Type: Spontaneous
  Country: US (occurrence: US)
  Receive Date: 20130516
  Receipt Date: 20130516
  Transmission Date: 20140414
  Serious: No
  Sender: FDA-Public Use
  Company Number: US-PFIZER INC-2013148735

PATIENT
  Age: 59 Year
  Sex: Female
  Weight: 53.06 kg

DRUGS (1)
  1. SUTENT [Suspect]
     Indication: RENAL CANCER
     Dosage: 50 MG, 1X/DAY
     Route: 048
     Dates: start: 20130405, end: 2013

REACTIONS (9)
  - Blood potassium increased [Unknown]
  - Blood test abnormal [Unknown]
  - Rash macular [Unknown]
  - Tongue disorder [Unknown]
  - Nasal discomfort [Unknown]
  - Nasal congestion [Unknown]
  - Oral pain [Unknown]
  - Oral mucosal blistering [Unknown]
  - Swollen tongue [Unknown]
